FAERS Safety Report 4819841-1 (Version None)
Quarter: 2005Q4

REPORT INFORMATION
  Report Type: 
  Country: None (occurrence: None)
  Receive Date: 20051102
  Receipt Date: 20051020
  Transmission Date: 20060501
  Serious: Yes (Death, Hospitalization)
  Sender: FDA-Public Use
  Company Number: CHF-20050186

PATIENT
  Sex: Male

DRUGS (3)
  1. CUROSURF [Suspect]
     Indication: RESPIRATORY DISTRESS
     Dosage: SEE IMAGE
     Route: 039
     Dates: start: 20050625, end: 20050625
  2. CUROSURF [Suspect]
     Indication: RESPIRATORY DISTRESS
     Dosage: SEE IMAGE
     Route: 039
     Dates: start: 20050625, end: 20050625
  3. PHENOTAL -PHENOBARBITAL [Concomitant]

REACTIONS (5)
  - ACIDOSIS [None]
  - CARDIAC ARREST [None]
  - OXYGEN SATURATION DECREASED [None]
  - PNEUMOPERICARDIUM [None]
  - SHOCK [None]
